FAERS Safety Report 5144325-3 (Version None)
Quarter: 2006Q4

REPORT INFORMATION
  Report Type: 
  Country: None (occurrence: None)
  Receive Date: 20061030
  Receipt Date: 20061011
  Transmission Date: 20070319
  Serious: Yes (Other)
  Sender: FDA-Public Use
  Company Number: USA040157064

PATIENT
  Age: 72 Year
  Sex: Female

DRUGS (2)
  1. FORTEO [Suspect]
     Indication: OSTEOPOROSIS
     Dosage: 20 UG, DAILY (1/D)
     Dates: start: 20031111
  2. FORTEO [Concomitant]

REACTIONS (4)
  - IMPAIRED HEALING [None]
  - NAUSEA [None]
  - OSTEONECROSIS [None]
  - PHARMACEUTICAL PRODUCT COMPLAINT [None]
